FAERS Safety Report 16754966 (Version 1)
Quarter: 2019Q3

REPORT INFORMATION
  Report Type: Spontaneous
  Country: US (occurrence: US)
  Receive Date: 20190711
  Receipt Date: 20190711
  Transmission Date: 20191005
  Serious: No
  Sender: FDA-Public Use
  Company Number: None

PATIENT
  Age: 70 Year
  Sex: Female

DRUGS (1)
  1. REPATHA [Suspect]
     Active Substance: EVOLOCUMAB
     Dates: start: 201907

REACTIONS (7)
  - Dizziness [None]
  - Hypertension [None]
  - Musculoskeletal pain [None]
  - Pyrexia [None]
  - Nausea [None]
  - Neck pain [None]
  - Oropharyngeal pain [None]

NARRATIVE: CASE EVENT DATE: 20190702
